FAERS Safety Report 7246829-6 (Version None)
Quarter: 2011Q1

REPORT INFORMATION
  Report Type: 
  Country: None (occurrence: None)
  Receive Date: 20110127
  Receipt Date: 20110124
  Transmission Date: 20110831
  Serious: Yes (Death, Hospitalization)
  Sender: FDA-Public Use
  Company Number: US-B.I. PHARMACEUTICALS,INC./RIDGEFIELD-2010-BP-13638BP

PATIENT
  Sex: Male
  Weight: 75.3 kg

DRUGS (6)
  1. METOPROLOL [Concomitant]
     Dosage: 100 MG
     Route: 048
     Dates: start: 20100915
  2. LISINOPRIL [Concomitant]
     Dosage: 20 MG
     Route: 048
     Dates: start: 20100419
  3. MEVACOR [Concomitant]
     Dosage: 20 MG
     Route: 048
     Dates: start: 20100419
  4. SPIRIVA [Suspect]
     Dosage: 18 MCG
     Route: 055
     Dates: start: 20100819, end: 20100915
  5. LEVAQUIN [Concomitant]
     Dosage: 750 MG
     Route: 048
  6. SUREPRIN 81 [Concomitant]
     Dosage: 81 MG
     Route: 048

REACTIONS (11)
  - INCREASED BRONCHIAL SECRETION [None]
  - THROAT CANCER [None]
  - HYPERLIPIDAEMIA [None]
  - VOCAL CORD PARALYSIS [None]
  - CORONARY ANGIOPLASTY [None]
  - ESSENTIAL HYPERTENSION [None]
  - CHRONIC OBSTRUCTIVE PULMONARY DISEASE [None]
  - DYSPNOEA [None]
  - BENIGN NEOPLASM OF PROSTATE [None]
  - BENIGN PROSTATIC HYPERPLASIA [None]
  - ARTERIOSCLEROSIS CORONARY ARTERY [None]
